FAERS Safety Report 10956504 (Version 1)
Quarter: 2015Q1

REPORT INFORMATION
  Report Type: Spontaneous
  Country: None (occurrence: None)
  Receive Date: 20150325
  Receipt Date: 20150325
  Transmission Date: 20150721
  Serious: Yes (Other)
  Sender: FDA-Public Use
  Company Number: None

PATIENT
  Age: 62 Year
  Sex: Female

DRUGS (1)
  1. TIMOPTIC-XE [Suspect]
     Active Substance: TIMOLOL MALEATE
     Dosage: 1 DROP BOTH EYES
     Route: 047

REACTIONS (3)
  - Drug hypersensitivity [None]
  - Erythema [None]
  - Vomiting [None]

NARRATIVE: CASE EVENT DATE: 20150319
